FAERS Safety Report 24076191 (Version 1)
Quarter: 2024Q3

REPORT INFORMATION
  Report Type: Report from Study
  Country: US (occurrence: US)
  Receive Date: 20240710
  Receipt Date: 20240710
  Transmission Date: 20241016
  Serious: Yes (Hospitalization, Other)
  Sender: ABBVIE
  Company Number: US-ABBVIE-5832673

PATIENT
  Age: 68 Year
  Sex: Female

DRUGS (1)
  1. LUMIGAN [Suspect]
     Active Substance: BIMATOPROST
     Indication: Glaucoma
     Dosage: 1 DROP EACH EYE? STRENGTH- 0.3MG/ML
     Route: 047
     Dates: start: 202211

REACTIONS (5)
  - Pneumonia [Recovered/Resolved]
  - Painful respiration [Recovered/Resolved]
  - Chest pain [Recovered/Resolved]
  - Renal failure [Not Recovered/Not Resolved]
  - Pulmonary oedema [Recovered/Resolved]

NARRATIVE: CASE EVENT DATE: 20240601
